FAERS Safety Report 7338834-6 (Version None)
Quarter: 2011Q1

REPORT INFORMATION
  Report Type: 
  Country: None (occurrence: None)
  Receive Date: 20110303
  Receipt Date: 20110303
  Transmission Date: 20110831
  Serious: Yes (Life-Threatening, Other)
  Sender: FDA-Public Use
  Company Number: None

PATIENT
  Sex: Female
  Weight: 106.9 kg

DRUGS (12)
  1. GLYBURIDE - MICRONASE; DIABETA [Concomitant]
  2. METOPROLOL -LOPRESSOR- [Concomitant]
  3. JANUVIA [Concomitant]
  4. AMBIEN [Concomitant]
  5. FREESTYLE LITE STRIPS TEST [Concomitant]
  6. METFORMIN -GLUCOPHASE- [Concomitant]
  7. MULTI-VITAMIN [Concomitant]
  8. CRESTOR [Concomitant]
  9. ASPIRIN [Concomitant]
  10. COUMADIN [Concomitant]
  11. PROFILNINE SD [Suspect]
     Indication: INTERNATIONAL NORMALISED RATIO INCREASED
     Dosage: 1700 UNITS ONCE IV
     Route: 042
     Dates: start: 20110205, end: 20110205
  12. OXYCODONE/ACETAMINOPHEN (PERCOCET) [Concomitant]

REACTIONS (13)
  - CORONARY ARTERY THROMBOSIS [None]
  - METABOLIC ACIDOSIS [None]
  - SHOCK HAEMORRHAGIC [None]
  - DISSEMINATED INTRAVASCULAR COAGULATION [None]
  - CORONARY ARTERY OCCLUSION [None]
  - RESPIRATORY FAILURE [None]
  - PERICARDIAL EFFUSION [None]
  - PLEURAL EFFUSION [None]
  - CARDIAC ARREST [None]
  - RENAL FAILURE ACUTE [None]
  - VENTRICULAR FIBRILLATION [None]
  - CARDIOGENIC SHOCK [None]
  - LACTIC ACIDOSIS [None]
